FAERS Safety Report 5479789-9 (Version None)
Quarter: 2007Q4

REPORT INFORMATION
  Report Type: 
  Country: None (occurrence: None)
  Receive Date: 20071008
  Receipt Date: 20070926
  Transmission Date: 20080405
  Serious: No
  Sender: FDA-Public Use
  Company Number: DEWYE380026SEP07

PATIENT
  Sex: Female

DRUGS (1)
  1. VENLAFAXINE HCL [Suspect]
     Dosage: UNKNOWN
     Route: 048

REACTIONS (4)
  - SELENIUM DEFICIENCY [None]
  - VITAMIN C DEFICIENCY [None]
  - VITAMIN E DEFICIENCY [None]
  - ZINC DEFICIENCY [None]
